FAERS Safety Report 6928947-2 (Version None)
Quarter: 2010Q3

REPORT INFORMATION
  Report Type: 
  Country: None (occurrence: None)
  Receive Date: 20100817
  Receipt Date: 20100803
  Transmission Date: 20110219
  Serious: Yes (Life-Threatening)
  Sender: FDA-Public Use
  Company Number: GB-MYLANLABS-2010S1014100

PATIENT
  Age: 20 Year
  Sex: Female
  Weight: 65 kg

DRUGS (12)
  1. RANITIDINE [Suspect]
     Indication: PROPHYLAXIS
     Route: 042
  2. FENTANYL [Suspect]
     Indication: EPIDURAL ANAESTHESIA
     Route: 008
  3. METOCLOPRAMIDE [Suspect]
     Indication: PROPHYLAXIS
     Route: 042
  4. BUPIVACAINE HCL [Suspect]
     Indication: EPIDURAL ANAESTHESIA
  5. BUPIVACAINE HCL [Suspect]
  6. BUPIVACAINE HCL [Suspect]
  7. ISOFLURANE [Suspect]
     Indication: PRODUCT USED FOR UNKNOWN INDICATION
  8. LIDOCAINE [Suspect]
     Indication: EPIDURAL ANAESTHESIA
  9. OXYTOCIN [Suspect]
     Indication: PRODUCT USED FOR UNKNOWN INDICATION
  10. SODIUM CITRATE [Suspect]
     Indication: PROPHYLAXIS
     Route: 048
  11. SUXAMETHONIUM [Suspect]
     Indication: ANAESTHESIA
  12. THIOPENTAL SODIUM [Suspect]
     Indication: ANAESTHESIA

REACTIONS (2)
  - CARDIAC ARREST [None]
  - DRUG EXPOSURE DURING PREGNANCY [None]
